FAERS Safety Report 21250601 (Version 3)
Quarter: 2022Q4

REPORT INFORMATION
  Report Type: Report from Study
  Country: CH (occurrence: CH)
  Receive Date: 20220824
  Receipt Date: 20221003
  Transmission Date: 20230113
  Serious: Yes (Hospitalization)
  Sender: FDA-Public Use
  Company Number: CH-ABBVIE-22K-151-4514710-00

PATIENT
  Age: 63 Year
  Sex: Male

DRUGS (4)
  1. CARBIDOPA\LEVODOPA [Suspect]
     Active Substance: CARBIDOPA\LEVODOPA
     Indication: Parkinson^s disease
     Dosage: MD 6.0ML, CRD 3.4ML/H, CRN 2.0ML/H, ED 1.0ML
     Route: 050
     Dates: start: 20220719, end: 20220819
  2. CARBIDOPA\LEVODOPA [Suspect]
     Active Substance: CARBIDOPA\LEVODOPA
     Dosage: MD 9.0ML, CRD 3.8ML/H, CRN 2.0ML/H, ED 2.0ML
     Route: 050
     Dates: start: 20220819, end: 20220822
  3. CARBIDOPA\LEVODOPA [Suspect]
     Active Substance: CARBIDOPA\LEVODOPA
     Dosage: MD 9.0ML, CRD 3.8ML/H, CRN 2.0ML/H, ED 2.0ML
     Route: 050
     Dates: start: 20220822, end: 20220823
  4. CARBIDOPA\LEVODOPA [Suspect]
     Active Substance: CARBIDOPA\LEVODOPA
     Dosage: MD 9.0ML, CRD 3.8ML/H, CRN 2.0ML/H, ED 2.0ML
     Route: 050
     Dates: start: 20220824

REACTIONS (3)
  - Device breakage [Recovered/Resolved]
  - Freezing phenomenon [Not Recovered/Not Resolved]
  - Off label use [Recovered/Resolved]

NARRATIVE: CASE EVENT DATE: 20220801
